FAERS Safety Report 5408926-7 (Version None)
Quarter: 2007Q3

REPORT INFORMATION
  Report Type: 
  Country: None (occurrence: None)
  Receive Date: 20070808
  Receipt Date: 20070801
  Transmission Date: 20080115
  Serious: Yes (Other)
  Sender: FDA-Public Use
  Company Number: DE-PFIZER INC-2007063937

PATIENT
  Age: 83 Year
  Sex: Female

DRUGS (6)
  1. ZOLOFT [Suspect]
     Indication: DEPRESSION
     Route: 048
  2. ZOLOFT [Suspect]
     Indication: ANXIETY
  3. FLUANXOL [Concomitant]
     Route: 048
  4. LORAZEPAM [Concomitant]
     Route: 048
  5. CARMEN [Concomitant]
     Route: 048
  6. THYRONAJOD [Concomitant]
     Route: 048

REACTIONS (2)
  - CONFUSIONAL STATE [None]
  - GAIT DISTURBANCE [None]
